FAERS Safety Report 8518163-5 (Version None)
Quarter: 2012Q3

REPORT INFORMATION
  Report Type: 
  Country: None (occurrence: None)
  Receive Date: 20120718
  Receipt Date: 20111012
  Transmission Date: 20120928
  Serious: Yes (Other)
  Sender: FDA-Public Use
  Company Number: US-BRISTOL-MYERS SQUIBB COMPANY-16158313

PATIENT
  Sex: Female

DRUGS (2)
  1. COUMADIN [Suspect]
     Dosage: AFTER THAT INCREASE UPTO 10MG
  2. TAPAZOLE [Interacting]

REACTIONS (3)
  - DRUG INTERACTION [None]
  - TREATMENT NONCOMPLIANCE [None]
  - INTERNATIONAL NORMALISED RATIO ABNORMAL [None]
